FAERS Safety Report 6309595-4 (Version None)
Quarter: 2009Q3

REPORT INFORMATION
  Report Type: 
  Country: None (occurrence: None)
  Receive Date: 20090814
  Receipt Date: 20090807
  Transmission Date: 20100115
  Serious: Yes (Hospitalization)
  Sender: FDA-Public Use
  Company Number: DE-ABBOTT-08P-062-0475996-00

PATIENT
  Age: 59 Year
  Sex: Female
  Weight: 91 kg

DRUGS (7)
  1. HUMIRA [Suspect]
     Indication: RHEUMATOID ARTHRITIS
     Route: 058
     Dates: start: 20040601, end: 20080801
  2. HUMIRA [Suspect]
     Route: 058
     Dates: start: 20080901
  3. METHOTREXATE [Suspect]
     Indication: RHEUMATOID ARTHRITIS
     Dates: start: 20050201, end: 20080801
  4. METHOTREXATE [Suspect]
     Dates: start: 20081101
  5. SULFASALAZINE [Suspect]
     Indication: RHEUMATOID ARTHRITIS
     Dates: start: 20080801
  6. SULFASALAZINE [Concomitant]
     Dates: start: 20071201
  7. NSAR [Concomitant]
     Indication: RHEUMATOID ARTHRITIS

REACTIONS (3)
  - BILE DUCT STONE [None]
  - CHOLANGITIS [None]
  - LIVER ABSCESS [None]
